FAERS Safety Report 20633174 (Version 1)
Quarter: 2022Q1

REPORT INFORMATION
  Report Type: Spontaneous
  Country: US (occurrence: None)
  Receive Date: 20220324
  Receipt Date: 20220324
  Transmission Date: 20220423
  Serious: Yes (Other)
  Sender: FDA-Public Use
  Company Number: None

PATIENT
  Age: 7 Year
  Sex: Female
  Weight: 20.7 kg

DRUGS (5)
  1. MONTELUKAST [Suspect]
     Active Substance: MONTELUKAST SODIUM
     Indication: Multiple allergies
     Dates: start: 20220113, end: 20220123
  2. MONTELUKAST [Suspect]
     Active Substance: MONTELUKAST SODIUM
     Indication: Asthma
  3. VITAMINS [Concomitant]
     Active Substance: VITAMINS
  4. FIBER [Concomitant]
     Active Substance: PSYLLIUM HUSK
  5. Prebiotic/Probiotic [Concomitant]

REACTIONS (7)
  - Depression [None]
  - Anxiety [None]
  - Nightmare [None]
  - Lethargy [None]
  - Depressed level of consciousness [None]
  - Feeding disorder [None]
  - Agoraphobia [None]

NARRATIVE: CASE EVENT DATE: 20220115
